FAERS Safety Report 4525421-8 (Version None)
Quarter: 2004Q4

REPORT INFORMATION
  Report Type: 
  Country: None (occurrence: None)
  Receive Date: 20041213
  Receipt Date: 20041202
  Transmission Date: 20050328
  Serious: Yes (Hospitalization)
  Sender: FDA-Public Use
  Company Number: GB-GLAXOSMITHKLINE-B0359049A

PATIENT
  Age: 64 Year
  Sex: Male

DRUGS (5)
  1. AVANDAMET [Suspect]
     Dosage: 2UNIT TWICE PER DAY
     Route: 048
     Dates: start: 20040801
  2. GLYBURIDE [Concomitant]
     Route: 048
     Dates: end: 20040801
  3. ASPIRIN [Concomitant]
     Dosage: 75MG PER DAY
     Route: 048
     Dates: start: 20030101
  4. ZESTORETIC [Concomitant]
     Route: 048
     Dates: start: 20030101
  5. ATORVASTATIN [Concomitant]
     Dosage: 10MG PER DAY
     Route: 048

REACTIONS (5)
  - CARDIOMEGALY [None]
  - DYSPNOEA EXACERBATED [None]
  - METABOLIC ACIDOSIS [None]
  - PULMONARY OEDEMA [None]
  - RESPIRATORY ACIDOSIS [None]
